FAERS Safety Report 6031483-1 (Version None)
Quarter: 2008Q4

REPORT INFORMATION
  Report Type: 
  Country: None (occurrence: None)
  Receive Date: 20081222
  Receipt Date: 20081020
  Transmission Date: 20090506
  Serious: No
  Sender: FDA-Public Use
  Company Number: US-WYE-H06484908

PATIENT
  Age: 44 Year
  Sex: Female
  Weight: 72.64 kg

DRUGS (5)
  1. PRISTIQ [Suspect]
     Indication: DEPRESSION
     Dosage: 50 MG 1X PER 1 DAY, ORAL
     Route: 048
     Dates: start: 20081016
  2. PRISTIQ [Suspect]
     Indication: HOT FLUSH
     Dosage: 50 MG 1X PER 1 DAY, ORAL
     Route: 048
     Dates: start: 20081016
  3. TRILAFON [Concomitant]
  4. LORAZEPAM [Concomitant]
  5. SYNTHROID [Concomitant]

REACTIONS (1)
  - DIARRHOEA [None]
